FAERS Safety Report 8811841 (Version 1)
Quarter: 2012Q4

REPORT INFORMATION
  Report Type: 
  Country: CN (occurrence: CN)
  Receive Date: 20120927
  Receipt Date: 20120927
  Transmission Date: 20130627
  Serious: Yes (Other)
  Sender: FDA-Public Use
  Company Number: CN-GLAXOSMITHKLINE-B0832682A

PATIENT
  Sex: Male

DRUGS (2)
  1. HEPTODIN [Suspect]
     Indication: HEPATITIS B
     Dosage: 100MG per day
     Route: 048
     Dates: start: 20100701, end: 20100909
  2. SEBIVO [Suspect]
     Indication: HEPATITIS B
     Dosage: 600MG per day
     Route: 065

REACTIONS (2)
  - Lactic acidosis [Recovering/Resolving]
  - Blood creatine phosphokinase increased [Recovering/Resolving]
